FAERS Safety Report 7820739-5 (Version None)
Quarter: 2011Q4

REPORT INFORMATION
  Report Type: 
  Country: None (occurrence: None)
  Receive Date: 20111018
  Receipt Date: 20111016
  Transmission Date: 20120403
  Serious: No
  Sender: FDA-Public Use
  Company Number: US-B.I. PHARMACEUTICALS,INC./RIDGEFIELD-2011-BP-24318BP

PATIENT
  Sex: Female

DRUGS (6)
  1. DILITIAZEM CD [Concomitant]
     Indication: HYPERTENSION
  2. LEVOTHYROXINE SODIUM [Concomitant]
     Indication: HYPOTHYROIDISM
  3. PRADAXA [Suspect]
     Indication: ATRIAL FIBRILLATION
     Dosage: 300 MG
     Route: 048
     Dates: start: 20110925
  4. LIPITOR [Concomitant]
     Indication: BLOOD CHOLESTEROL INCREASED
  5. METOPROLOL TARTRATE [Concomitant]
     Indication: HYPERTENSION
  6. TRIAMTERENE AND HYDROCHLOROTHIAZIDE [Concomitant]
     Indication: HYPERTENSION

REACTIONS (1)
  - TENSION HEADACHE [None]
